FAERS Safety Report 8734811 (Version 2)
Quarter: 2012Q4

REPORT INFORMATION
  Report Type: 
  Country: BR (occurrence: BR)
  Receive Date: 20120821
  Receipt Date: 20120907
  Transmission Date: 20130627
  Serious: Yes (Other)
  Sender: FDA-Public Use
  Company Number: BR-PFIZER INC-2012200907

PATIENT
  Age: 57 Year
  Sex: Female
  Weight: 62 kg

DRUGS (3)
  1. ATORVASTATIN CALCIUM [Suspect]
     Indication: DYSLIPIDAEMIA
     Dosage: 10 mg, 1x/day
     Route: 048
     Dates: start: 20110803, end: 20120112
  2. ATORVASTATIN CALCIUM [Suspect]
     Indication: HEART RATE INCREASED
  3. ATORVASTATIN CALCIUM [Suspect]
     Indication: CARDIAC DISORDER

REACTIONS (4)
  - Venous occlusion [Not Recovered/Not Resolved]
  - Electrocardiogram ST segment elevation [Unknown]
  - Dyspnoea [Not Recovered/Not Resolved]
  - Fatigue [Unknown]
